FAERS Safety Report 6035316-9 (Version None)
Quarter: 2009Q1

REPORT INFORMATION
  Report Type: 
  Country: None (occurrence: None)
  Receive Date: 20090108
  Receipt Date: 20081223
  Transmission Date: 20090719
  Serious: No
  Sender: FDA-Public Use
  Company Number: 128729

PATIENT
  Age: 83 Year
  Sex: Female
  Weight: 69.8 kg

DRUGS (5)
  1. CARBOPLATIN [Suspect]
     Indication: OVARIAN CANCER
     Dosage: 306 MG, OVER 30-60 MIN, INTRAVENOUS
     Route: 042
  2. DECADRON [Concomitant]
  3. (ZOFRAN /0095501/) [Concomitant]
  4. ATIVAN [Concomitant]
  5. BENADRYL [Concomitant]

REACTIONS (6)
  - FAECAL INCONTINENCE [None]
  - FLUSHING [None]
  - HYPOTENSION [None]
  - LIVEDO RETICULARIS [None]
  - MALAISE [None]
  - PALLOR [None]
